FAERS Safety Report 5921825-7 (Version None)
Quarter: 2008Q4

REPORT INFORMATION
  Report Type: 
  Country: None (occurrence: None)
  Receive Date: 20081016
  Receipt Date: 20081016
  Transmission Date: 20090506
  Serious: Yes (Hospitalization)
  Sender: FDA-Public Use
  Company Number: None

PATIENT
  Age: 24 Year
  Sex: Female
  Weight: 76.6579 kg

DRUGS (1)
  1. NUVARING [Suspect]
     Indication: CONTRACEPTION
     Dosage: 1 RING 3 WEEKS VAG
     Route: 067
     Dates: start: 20080301, end: 20080910

REACTIONS (1)
  - TRANSIENT ISCHAEMIC ATTACK [None]
